FAERS Safety Report 9869889 (Version 1)
Quarter: 2014Q1

REPORT INFORMATION
  Report Type: Spontaneous
  Country: US (occurrence: None)
  Receive Date: 20140203
  Receipt Date: 20140203
  Transmission Date: 20141002
  Serious: No
  Sender: FDA-Public Use
  Company Number: None

PATIENT
  Age: 31 Year
  Sex: Female
  Weight: 65 kg

DRUGS (2)
  1. OFLOXACIN [Suspect]
     Indication: PYREXIA
     Route: 048
     Dates: start: 20131212
  2. OFLOXACIN [Suspect]
     Indication: CHILLS
     Route: 048
     Dates: start: 20131212

REACTIONS (3)
  - Urticaria [None]
  - Erythema [None]
  - Pruritus [None]
